FAERS Safety Report 24362442 (Version 1)
Quarter: 2024Q3

REPORT INFORMATION
  Report Type: Spontaneous
  Country: US (occurrence: None)
  Receive Date: 20240925
  Receipt Date: 20240925
  Transmission Date: 20241017
  Serious: Yes (Hospitalization)
  Sender: Public
  Company Number: None

PATIENT
  Age: 69 Year
  Sex: Male

DRUGS (1)
  1. DEFERASIROX [Suspect]
     Active Substance: DEFERASIROX
     Indication: Iron metabolism disorder
     Dosage: FREQUENCY : DAILY;?

REACTIONS (7)
  - Pneumonia [None]
  - Sepsis [None]
  - Serum ferritin abnormal [None]
  - Therapy interrupted [None]
  - Fall [None]
  - Head injury [None]
  - Bone contusion [None]
